FAERS Safety Report 10007476 (Version 1)
Quarter: 2014Q1

REPORT INFORMATION
  Report Type: Spontaneous
  Country: US (occurrence: None)
  Receive Date: 20140312
  Receipt Date: 20140312
  Transmission Date: 20141002
  Serious: Yes (Other)
  Sender: FDA-Public Use
  Company Number: None

PATIENT
  Age: 35 Year
  Sex: Female

DRUGS (1)
  1. VELIVET BARR [Suspect]
     Route: 048
     Dates: start: 20130418, end: 20130510

REACTIONS (1)
  - Breast disorder [None]
